FAERS Safety Report 23101193 (Version 1)
Quarter: 2023Q4

REPORT INFORMATION
  Report Type: Other
  Country: JP (occurrence: JP)
  Receive Date: 20231024
  Receipt Date: 20231024
  Transmission Date: 20240109
  Serious: Yes (Hospitalization)
  Sender: FDA-Public Use
  Company Number: JP-ARGENX-2023-ARGX-JP003526

PATIENT

DRUGS (3)
  1. EFGARTIGIMOD ALFA [Suspect]
     Active Substance: EFGARTIGIMOD ALFA
     Indication: Product used for unknown indication
     Dosage: UNK
  2. RAVULIZUMAB [Concomitant]
     Active Substance: RAVULIZUMAB
     Indication: Myasthenia gravis
     Dosage: 2700 MG
     Route: 042
  3. RAVULIZUMAB [Concomitant]
     Active Substance: RAVULIZUMAB
     Dosage: 3300 MG
     Route: 042

REACTIONS (1)
  - Pyrexia [Unknown]
